FAERS Safety Report 10334554 (Version 3)
Quarter: 2014Q3

REPORT INFORMATION
  Report Type: Spontaneous
  Country: US (occurrence: US)
  Receive Date: 20140723
  Receipt Date: 20140828
  Transmission Date: 20150326
  Serious: Yes (Hospitalization, Other)
  Sender: FDA-Public Use
  Company Number: US-009507513-1407USA005490

PATIENT
  Age: 64 Year
  Sex: Male

DRUGS (1)
  1. PEGINTRON [Suspect]
     Active Substance: PEGINTERFERON ALFA-2B
     Dosage: ONCE A WEEK
     Dates: start: 20140523, end: 20140811

REACTIONS (5)
  - Presyncope [Recovered/Resolved]
  - Myalgia [Recovered/Resolved]
  - Product quality issue [Unknown]
  - Body temperature fluctuation [Recovered/Resolved]
  - Arthralgia [Recovered/Resolved]

NARRATIVE: CASE EVENT DATE: 2014
